FAERS Safety Report 11917730 (Version 1)
Quarter: 2016Q1

REPORT INFORMATION
  Report Type: Other
  Country: DE (occurrence: DE)
  Receive Date: 20160114
  Receipt Date: 20160114
  Transmission Date: 20160526
  Serious: Yes (Other)
  Sender: FDA-Public Use
  Company Number: DE-VERTEX PHARMACEUTICALS-2016-000142

PATIENT
  Age: 32 Year
  Sex: Male
  Weight: 57 kg

DRUGS (1)
  1. ORKAMBI [Suspect]
     Active Substance: IVACAFTOR\LUMACAFTOR
     Indication: CYSTIC FIBROSIS
     Dosage: 4 DF, BID
     Route: 048
     Dates: start: 20151214, end: 20151228

REACTIONS (5)
  - Bronchial disorder [Recovered/Resolved]
  - Weight bearing difficulty [Recovered/Resolved]
  - Respiratory distress [Recovered/Resolved]
  - Increased bronchial secretion [Recovered/Resolved]
  - Rhinorrhoea [Recovered/Resolved]

NARRATIVE: CASE EVENT DATE: 20151217
